FAERS Safety Report 23988186 (Version 1)
Quarter: 2024Q2

REPORT INFORMATION
  Report Type: Spontaneous
  Country: GB (occurrence: GB)
  Receive Date: 20240619
  Receipt Date: 20240619
  Transmission Date: 20240716
  Serious: Yes (Other)
  Sender: FDA-Public Use
  Company Number: None

PATIENT
  Age: 71 Year
  Sex: Male

DRUGS (1)
  1. ALENDRONATE SODIUM [Suspect]
     Active Substance: ALENDRONATE SODIUM
     Indication: Neoplasm malignant
     Dosage: 70MG ONCE A WEEK
     Dates: start: 20240501

REACTIONS (1)
  - Blood urine [Not Recovered/Not Resolved]

NARRATIVE: CASE EVENT DATE: 20240501
